FAERS Safety Report 19548467 (Version 2)
Quarter: 2021Q3

REPORT INFORMATION
  Report Type: Report from Study
  Country: CN (occurrence: CN)
  Receive Date: 20210714
  Receipt Date: 20210719
  Transmission Date: 20211014
  Serious: Yes (Hospitalization)
  Sender: FDA-Public Use
  Company Number: CN-GLAXOSMITHKLINE-CN2021149449

PATIENT
  Age: 73 Year
  Sex: Male
  Weight: 70 kg

DRUGS (14)
  1. ASTRAGALUS MEMBRANACEUS [Concomitant]
     Active Substance: ASTRAGALUS PROPINQUUS ROOT\HERBALS
     Indication: LACUNAR INFARCTION
  2. TERAZOSIN [Concomitant]
     Active Substance: TERAZOSIN HYDROCHLORIDE
     Indication: HYPERTENSION
     Dosage: 1 DF, QD
     Route: 048
     Dates: start: 20210104
  3. IRBESARTAN. [Concomitant]
     Active Substance: IRBESARTAN
     Indication: HYPERTENSION
     Dosage: 150 MG, QD
     Route: 048
     Dates: start: 2014
  4. ABIRATERONE ACETATE. [Suspect]
     Active Substance: ABIRATERONE ACETATE
     Indication: PROSTATE CANCER METASTATIC
     Dosage: MOST RECENT DOSE 29?JUN?2021
     Route: 048
     Dates: start: 20201124
  5. ASTRAGALUS MEMBRANACEUS [Concomitant]
     Active Substance: ASTRAGALUS PROPINQUUS ROOT\HERBALS
     Indication: MYOCARDIAL INFARCTION
     Dosage: 0.8 G, TID
     Route: 048
  6. PREDNISONE. [Suspect]
     Active Substance: PREDNISONE
     Indication: PROSTATE CANCER METASTATIC
     Dosage: MOST RECENT DOSE 29?JUN?2021
     Route: 048
     Dates: start: 20201124
  7. GOSERELIN [Concomitant]
     Active Substance: GOSERELIN
     Indication: PROSTATE CANCER
     Dosage: 3.6 MG, ONCE A MONTH
     Route: 065
     Dates: start: 20200605
  8. ALPRAZOLAM. [Concomitant]
     Active Substance: ALPRAZOLAM
     Indication: ANXIETY
     Dosage: 0.4 MG
     Route: 048
     Dates: start: 20201121
  9. NIRAPARIB [Suspect]
     Active Substance: NIRAPARIB
     Indication: PROSTATE CANCER METASTATIC
     Dosage: MOST RECENT DOSE 11?JUN?2021
     Route: 048
     Dates: start: 20201124
  10. ASTRAGALUS MEMBRANACEUS [Concomitant]
     Active Substance: ASTRAGALUS PROPINQUUS ROOT\HERBALS
     Indication: ARTERIOSCLEROSIS CORONARY ARTERY
     Dosage: 8 G, TID
     Route: 048
     Dates: start: 20210703
  11. ASTRAGALUS MEMBRANACEUS [Concomitant]
     Active Substance: ASTRAGALUS PROPINQUUS ROOT\HERBALS
     Indication: ANAEMIA
  12. TERAZOSIN [Concomitant]
     Active Substance: TERAZOSIN HYDROCHLORIDE
     Indication: BENIGN PROSTATIC HYPERPLASIA
     Dosage: 2 MG, QD
     Route: 048
     Dates: start: 20210618, end: 20210702
  13. METOPROLOL. [Concomitant]
     Active Substance: METOPROLOL
     Indication: HYPERTENSION
     Dosage: 47.5 MG, QD
     Route: 048
     Dates: start: 20210119
  14. METOPROLOL. [Concomitant]
     Active Substance: METOPROLOL
     Dosage: 95 MG, QD
     Route: 048
     Dates: start: 20210618, end: 20210626

REACTIONS (1)
  - Anaemia [Not Recovered/Not Resolved]

NARRATIVE: CASE EVENT DATE: 20210618
